FAERS Safety Report 20670356 (Version 2)
Quarter: 2022Q2

REPORT INFORMATION
  Report Type: Spontaneous
  Country: US (occurrence: US)
  Receive Date: 20220404
  Receipt Date: 20220512
  Transmission Date: 20220721
  Serious: Yes (Hospitalization)
  Sender: FDA-Public Use
  Company Number: US-JNJFOC-20220403324

PATIENT
  Age: 63 Year
  Sex: Female
  Weight: 104.42 kg

DRUGS (26)
  1. OPSUMIT [Suspect]
     Active Substance: MACITENTAN
     Indication: Pulmonary arterial hypertension
     Route: 048
     Dates: start: 20191128
  2. ALBUTEROL SULFATE [Concomitant]
     Active Substance: ALBUTEROL SULFATE
  3. ASPIRIN [Concomitant]
     Active Substance: ASPIRIN
     Route: 048
  4. CALCIUM CITRATE\VITAMIN D [Concomitant]
     Active Substance: CALCIUM CITRATE\VITAMIN D
     Dosage: 315MG-250 UNIT
     Route: 048
  5. CARVEDILOL [Concomitant]
     Active Substance: CARVEDILOL
     Dosage: 3.125 MG
  6. CYANOCOBALAMIN [Concomitant]
     Active Substance: CYANOCOBALAMIN
     Dosage: 1000 UG/ML
     Route: 030
  7. DICLOFENAC [Concomitant]
     Active Substance: DICLOFENAC
  8. DULOXETINE [Concomitant]
     Active Substance: DULOXETINE
     Route: 048
  9. EPINEPHRINE [EPINEPHRINE HYDROCHLORIDE] [Concomitant]
  10. FENOFIBRATE [Concomitant]
     Active Substance: FENOFIBRATE
     Route: 048
  11. FERROUS FUMARATE [Concomitant]
     Active Substance: FERROUS FUMARATE
     Route: 048
  12. FLUTICASONE [Concomitant]
     Active Substance: FLUTICASONE
  13. FLUTICASONE FUROATE\VILANTEROL TRIFENATATE [Concomitant]
     Active Substance: FLUTICASONE FUROATE\VILANTEROL TRIFENATATE
  14. FUROSEMIDE [Concomitant]
     Active Substance: FUROSEMIDE
     Route: 048
  15. INSULIN ASPART [Concomitant]
     Active Substance: INSULIN ASPART
     Route: 058
  16. LANTUS [Concomitant]
     Active Substance: INSULIN GLARGINE
     Dosage: 30 UNITS
     Route: 058
  17. LORATADINE [Concomitant]
     Active Substance: LORATADINE
     Route: 048
  18. LOSARTAN [Concomitant]
     Active Substance: LOSARTAN
     Route: 048
  19. METHOCARBAMOL [Concomitant]
     Active Substance: METHOCARBAMOL
  20. PREGABALIN [Concomitant]
     Active Substance: PREGABALIN
     Route: 048
  21. PROMETHAZINE [Concomitant]
     Active Substance: PROMETHAZINE HYDROCHLORIDE
     Dosage: 12.5 - 25 MG
     Route: 048
  22. RIOCIGUAT [Concomitant]
     Active Substance: RIOCIGUAT
     Route: 048
  23. SPIRIVA [Concomitant]
     Active Substance: TIOTROPIUM BROMIDE MONOHYDRATE
  24. SPIRONOLACTONE [Concomitant]
     Active Substance: SPIRONOLACTONE
     Route: 048
  25. TRIAMCINOLONE [Concomitant]
     Active Substance: TRIAMCINOLONE
     Route: 048
  26. ZOLPIDEM [Concomitant]
     Active Substance: ZOLPIDEM TARTRATE
     Route: 048

REACTIONS (1)
  - Lumbar spinal stenosis [Unknown]

NARRATIVE: CASE EVENT DATE: 20220329
